FAERS Safety Report 6738967-9 (Version None)
Quarter: 2010Q2

REPORT INFORMATION
  Report Type: 
  Country: None (occurrence: None)
  Receive Date: 20100521
  Receipt Date: 20100509
  Transmission Date: 20101027
  Serious: Yes (Other)
  Sender: FDA-Public Use
  Company Number: 2010PL000064

PATIENT
  Age: 23 Year
  Sex: Female

DRUGS (1)
  1. LOTRONEX [Suspect]
     Indication: DRUG USE FOR UNKNOWN INDICATION
     Dosage: 0.5M G;QD;PO
     Route: 048
     Dates: start: 20090301

REACTIONS (2)
  - ABDOMINAL PAIN [None]
  - COLITIS ISCHAEMIC [None]
